FAERS Safety Report 19741435 (Version 3)
Quarter: 2021Q4

REPORT INFORMATION
  Report Type: Spontaneous
  Country: US (occurrence: US)
  Receive Date: 20210825
  Receipt Date: 20211004
  Transmission Date: 20220303
  Serious: No
  Sender: FDA-Public Use
  Company Number: US-ETHYPHARM-2021001288

PATIENT
  Sex: Female

DRUGS (1)
  1. BUPRENORPHINE [Suspect]
     Active Substance: BUPRENORPHINE
     Route: 060
     Dates: start: 20210612

REACTIONS (8)
  - Burning sensation [Unknown]
  - Product taste abnormal [Unknown]
  - Abdominal discomfort [Unknown]
  - Hyperhidrosis [Unknown]
  - Migraine [Unknown]
  - Restless legs syndrome [Unknown]
  - Product substitution issue [Unknown]
  - Drug withdrawal syndrome [Unknown]

NARRATIVE: CASE EVENT DATE: 20210612
